FAERS Safety Report 4451218-3 (Version None)
Quarter: 2004Q3

REPORT INFORMATION
  Report Type: 
  Country: None (occurrence: None)
  Receive Date: 20040915
  Receipt Date: 20040915
  Transmission Date: 20050211
  Serious: Yes (Life-Threatening)
  Sender: FDA-Public Use
  Company Number: None

PATIENT
  Sex: Female
  Weight: 72.5755 kg

DRUGS (2)
  1. ZOLOFT [Suspect]
     Dosage: 100 MG AM
     Dates: start: 19970101
  2. LEXAPRO [Suspect]
     Dosage: 10 MG AM
     Dates: start: 20040301

REACTIONS (15)
  - AGITATION [None]
  - BIPOLAR I DISORDER [None]
  - CONDITION AGGRAVATED [None]
  - DEPRESSION [None]
  - FEELING OF DESPAIR [None]
  - FEELINGS OF WORTHLESSNESS [None]
  - INSOMNIA [None]
  - IRRITABILITY [None]
  - PANIC REACTION [None]
  - PARANOIA [None]
  - PSYCHOTIC DISORDER [None]
  - SPEECH DISORDER [None]
  - STRESS SYMPTOMS [None]
  - SUICIDAL IDEATION [None]
  - WEIGHT INCREASED [None]
